FAERS Safety Report 4848992-0 (Version None)
Quarter: 2005Q4

REPORT INFORMATION
  Report Type: 
  Country: None (occurrence: None)
  Receive Date: 20051122
  Receipt Date: 20050817
  Transmission Date: 20060501
  Serious: Yes (Hospitalization)
  Sender: FDA-Public Use
  Company Number: US-JNJFOC-20050704945

PATIENT
  Age: 50 Year
  Sex: Male
  Weight: 95.709 kg

DRUGS (5)
  1. RISPERDAL [Suspect]
     Indication: SCHIZOPHRENIA, PARANOID TYPE
     Dosage: 75 MG, IN 2 WEEK, INTRA-MUSCULAR
     Route: 030
     Dates: start: 20041130, end: 20050628
  2. DEPAKOTE [Concomitant]
  3. TRAZADONE (TRAZODONE) TABLETS [Concomitant]
  4. COGENTIN (BENZATROPINE MESILATE) TABLETS [Concomitant]
  5. RISPERDAL [Concomitant]

REACTIONS (2)
  - HALLUCINATION, AUDITORY [None]
  - INSOMNIA [None]
